FAERS Safety Report 5284302-5 (Version None)
Quarter: 2007Q2

REPORT INFORMATION
  Report Type: 
  Country: None (occurrence: None)
  Receive Date: 20070403
  Receipt Date: 20070322
  Transmission Date: 20071010
  Serious: Yes (Other)
  Sender: FDA-Public Use
  Company Number: PHBS2007JP04519

PATIENT
  Age: 66 Year
  Sex: Female

DRUGS (2)
  1. VOLTAREN [Suspect]
     Indication: NASOPHARYNGITIS
     Route: 054
     Dates: start: 19990301, end: 20041101
  2. LEVOFLOXACIN [Concomitant]
     Indication: NASOPHARYNGITIS
     Dates: start: 19990301, end: 20041101

REACTIONS (6)
  - CONDITION AGGRAVATED [None]
  - DERMATITIS ATOPIC [None]
  - ERYTHEMA [None]
  - NUCHAL RIGIDITY [None]
  - PRURITUS [None]
  - SKIN DISCOLOURATION [None]
